FAERS Safety Report 8160534-3 (Version None)
Quarter: 2012Q1

REPORT INFORMATION
  Report Type: 
  Country: None (occurrence: None)
  Receive Date: 20120223
  Receipt Date: 20120219
  Transmission Date: 20120608
  Serious: No
  Sender: FDA-Public Use
  Company Number: US-BAYER-2012-017894

PATIENT
  Age: 48 Year
  Sex: Female
  Weight: 65 kg

DRUGS (6)
  1. CELEXA [Concomitant]
  2. ALKA-SELTZER PLUS DAY,ALKA-SELTZER PLUS NIGHT [Suspect]
     Dosage: 2 TAB USED ONLY ONE TIME
     Route: 048
     Dates: start: 20120218
  3. DIAZEPAM [Concomitant]
  4. ASPIRIN [Suspect]
  5. PREDNISONE [Concomitant]
  6. NEURONTIN [Concomitant]

REACTIONS (4)
  - DIZZINESS [None]
  - VISUAL IMPAIRMENT [None]
  - ABDOMINAL PAIN UPPER [None]
  - SOMNOLENCE [None]
